FAERS Safety Report 11295531 (Version 2)
Quarter: 2015Q3

REPORT INFORMATION
  Report Type: Spontaneous
  Country: US (occurrence: US)
  Receive Date: 20150722
  Receipt Date: 20150916
  Transmission Date: 20151125
  Serious: No
  Sender: FDA-Public Use
  Company Number: US-ELI_LILLY_AND_COMPANY-US200901000743

PATIENT
  Sex: Female

DRUGS (3)
  1. EVISTA [Suspect]
     Active Substance: RALOXIFENE HYDROCHLORIDE
     Dosage: 60 MG, UNK
  2. EVISTA [Suspect]
     Active Substance: RALOXIFENE HYDROCHLORIDE
     Dosage: 60 MG, UNK
  3. FORTEO [Suspect]
     Active Substance: TERIPARATIDE

REACTIONS (13)
  - General physical health deterioration [Recovered/Resolved]
  - Skin disorder [Not Recovered/Not Resolved]
  - Fall [Recovered/Resolved]
  - Osteoporosis [Not Recovered/Not Resolved]
  - Iron deficiency [Recovered/Resolved]
  - Arthritis [Not Recovered/Not Resolved]
  - Coeliac disease [Not Recovered/Not Resolved]
  - Drug intolerance [Unknown]
  - Laboratory test abnormal [Recovered/Resolved]
  - Metabolic disorder [Recovered/Resolved]
  - Vasodilatation [Not Recovered/Not Resolved]
  - Bone loss [Recovering/Resolving]
  - Back pain [Recovered/Resolved]
